FAERS Safety Report 9008002 (Version 1)
Quarter: 2013Q1

REPORT INFORMATION
  Report Type: Spontaneous
  Country: JP (occurrence: JP)
  Receive Date: 20130110
  Receipt Date: 20130110
  Transmission Date: 20140127
  Serious: Yes (Death, Other)
  Sender: FDA-Public Use
  Company Number: PHHY2013JP002009

PATIENT
  Age: 47 Year
  Sex: Male

DRUGS (6)
  1. CICLOSPORIN [Suspect]
     Indication: PROPHYLAXIS AGAINST GRAFT VERSUS HOST DISEASE
  2. CICLOSPORIN [Suspect]
     Indication: STEM CELL TRANSPLANT
  3. METHOTREXATE [Suspect]
     Indication: PROPHYLAXIS AGAINST GRAFT VERSUS HOST DISEASE
     Dosage: 5 MG/KG, QD DAYS 1, 3, AND 6
  4. METHOTREXATE [Suspect]
     Indication: STEM CELL TRANSPLANT
  5. CYCLOPHOSPHAMIDE [Concomitant]
     Dosage: 60 MG/KG, QD  X2 DAYS
  6. IRRADIATION [Concomitant]
     Dosage: 2 GY X 6

REACTIONS (9)
  - Graft versus host disease in skin [Fatal]
  - Graft versus host disease in liver [Fatal]
  - Adult T-cell lymphoma/leukaemia [Fatal]
  - Malignant neoplasm progression [Fatal]
  - Adult T-cell lymphoma/leukaemia recurrent [Unknown]
  - Leukoencephalopathy [Unknown]
  - Cytomegalovirus infection [Unknown]
  - BK virus infection [Unknown]
  - Cystitis haemorrhagic [Unknown]
